FAERS Safety Report 9387066 (Version 3)
Quarter: 2013Q3

REPORT INFORMATION
  Report Type: Spontaneous
  Country: CH (occurrence: CH)
  Receive Date: 20130708
  Receipt Date: 20130805
  Transmission Date: 20140515
  Serious: Yes (Other)
  Sender: FDA-Public Use
  Company Number: PHHY2013CH068481

PATIENT
  Age: 51 Year
  Sex: Female

DRUGS (1)
  1. CLINDAMYCIN SANDOZ [Suspect]
     Dosage: 300 MG, QD
     Route: 048
     Dates: start: 20130618

REACTIONS (4)
  - Dyspnoea [Recovered/Resolved]
  - Back pain [Recovered/Resolved]
  - Throat irritation [Recovered/Resolved]
  - Aphagia [Unknown]
